FAERS Safety Report 15393611 (Version 4)
Quarter: 2025Q4

REPORT INFORMATION
  Report Type: Spontaneous
  Country: EU (occurrence: EU)
  Receive Date: 20180917
  Receipt Date: 20251208
  Transmission Date: 20260118
  Serious: Yes (Life-Threatening, Hospitalization, Other)
  Sender: MYLAN
  Company Number: EU-002147023-PHHY2018DE045384

PATIENT
  Age: 36 Year
  Sex: Male

DRUGS (40)
  1. METHOTREXATE [Suspect]
     Active Substance: METHOTREXATE
     Indication: Prophylaxis against graft versus host disease
     Dosage: UNK
  2. METHOTREXATE [Suspect]
     Active Substance: METHOTREXATE
     Dosage: UNK
     Route: 065
  3. METHOTREXATE [Suspect]
     Active Substance: METHOTREXATE
     Dosage: UNK
     Route: 065
  4. METHOTREXATE [Suspect]
     Active Substance: METHOTREXATE
     Dosage: UNK
  5. CYCLOSPORINE [Suspect]
     Active Substance: CYCLOSPORINE
     Indication: Prophylaxis against graft versus host disease
     Dosage: UNK
  6. CYCLOSPORINE [Suspect]
     Active Substance: CYCLOSPORINE
     Indication: Graft versus host disease in skin
     Dosage: UNK
     Route: 065
  7. CYCLOSPORINE [Suspect]
     Active Substance: CYCLOSPORINE
     Dosage: UNK
     Route: 065
  8. CYCLOSPORINE [Suspect]
     Active Substance: CYCLOSPORINE
     Dosage: UNK
  9. MYCOPHENOLATE MOFETIL [Suspect]
     Active Substance: MYCOPHENOLATE MOFETIL
     Indication: Graft versus host disease in skin
     Dosage: UNK
  10. MYCOPHENOLATE MOFETIL [Suspect]
     Active Substance: MYCOPHENOLATE MOFETIL
     Dosage: UNK
     Route: 065
  11. MYCOPHENOLATE MOFETIL [Suspect]
     Active Substance: MYCOPHENOLATE MOFETIL
     Dosage: UNK
     Route: 065
  12. MYCOPHENOLATE MOFETIL [Suspect]
     Active Substance: MYCOPHENOLATE MOFETIL
     Dosage: UNK
  13. METHYLPREDNISOLONE [Suspect]
     Active Substance: METHYLPREDNISOLONE
     Indication: Graft versus host disease in skin
     Dosage: UNK
  14. METHYLPREDNISOLONE [Suspect]
     Active Substance: METHYLPREDNISOLONE
     Dosage: UNK
     Route: 065
  15. METHYLPREDNISOLONE [Suspect]
     Active Substance: METHYLPREDNISOLONE
     Dosage: UNK
     Route: 065
  16. METHYLPREDNISOLONE [Suspect]
     Active Substance: METHYLPREDNISOLONE
     Dosage: UNK
  17. SOLIRIS [Suspect]
     Active Substance: ECULIZUMAB
     Indication: Thrombotic microangiopathy
     Dosage: 16 DF, UNK
     Dates: start: 20160501, end: 20161101
  18. SOLIRIS [Suspect]
     Active Substance: ECULIZUMAB
     Dosage: 16 DF, UNK
     Route: 065
     Dates: start: 20160501, end: 20161101
  19. SOLIRIS [Suspect]
     Active Substance: ECULIZUMAB
     Dosage: 16 DF, UNK
     Route: 065
     Dates: start: 20160501, end: 20161101
  20. SOLIRIS [Suspect]
     Active Substance: ECULIZUMAB
     Dosage: 16 DF, UNK
     Dates: start: 20160501, end: 20161101
  21. BUSULFAN [Concomitant]
     Active Substance: BUSULFAN
     Indication: Bone marrow conditioning regimen
     Dosage: 16 MG/KG, UNK
  22. BUSULFAN [Concomitant]
     Active Substance: BUSULFAN
     Dosage: 16 MG/KG, UNK
     Route: 065
  23. BUSULFAN [Concomitant]
     Active Substance: BUSULFAN
     Dosage: 16 MG/KG, UNK
     Route: 065
  24. BUSULFAN [Concomitant]
     Active Substance: BUSULFAN
     Dosage: 16 MG/KG, UNK
  25. IBRUTINIB [Concomitant]
     Active Substance: IBRUTINIB
     Indication: Lymphoma
     Dosage: UNK
  26. IBRUTINIB [Concomitant]
     Active Substance: IBRUTINIB
     Indication: Lymphocytic lymphoma
     Dosage: UNK
     Route: 065
  27. IBRUTINIB [Concomitant]
     Active Substance: IBRUTINIB
     Indication: Prophylaxis against graft versus host disease
     Dosage: UNK
     Route: 065
  28. IBRUTINIB [Concomitant]
     Active Substance: IBRUTINIB
     Dosage: UNK
  29. ALEMTUZUMAB [Concomitant]
     Active Substance: ALEMTUZUMAB
     Indication: Bone marrow conditioning regimen
     Dosage: UNK (LOW DOSE)
  30. ALEMTUZUMAB [Concomitant]
     Active Substance: ALEMTUZUMAB
     Dosage: UNK (LOW DOSE)
     Route: 065
  31. ALEMTUZUMAB [Concomitant]
     Active Substance: ALEMTUZUMAB
     Dosage: UNK (LOW DOSE)
     Route: 065
  32. ALEMTUZUMAB [Concomitant]
     Active Substance: ALEMTUZUMAB
     Dosage: UNK (LOW DOSE)
  33. CYCLOPHOSPHAMIDE [Concomitant]
     Active Substance: CYCLOPHOSPHAMIDE
     Indication: Bone marrow conditioning regimen
     Dosage: 120 MG/KG, UNK
  34. CYCLOPHOSPHAMIDE [Concomitant]
     Active Substance: CYCLOPHOSPHAMIDE
     Dosage: 120 MG/KG, UNK
     Route: 065
  35. CYCLOPHOSPHAMIDE [Concomitant]
     Active Substance: CYCLOPHOSPHAMIDE
     Dosage: 120 MG/KG, UNK
     Route: 065
  36. CYCLOPHOSPHAMIDE [Concomitant]
     Active Substance: CYCLOPHOSPHAMIDE
     Dosage: 120 MG/KG, UNK
  37. ECULIZUMAB [Concomitant]
     Active Substance: ECULIZUMAB
     Indication: Thrombotic microangiopathy
     Dosage: 16 DF, UNK
     Dates: start: 20160501, end: 20160501
  38. ECULIZUMAB [Concomitant]
     Active Substance: ECULIZUMAB
     Dosage: 16 DF, UNK
     Route: 065
     Dates: start: 20160501, end: 20160501
  39. ECULIZUMAB [Concomitant]
     Active Substance: ECULIZUMAB
     Dosage: 16 DF, UNK
     Route: 065
     Dates: start: 20160501, end: 20160501
  40. ECULIZUMAB [Concomitant]
     Active Substance: ECULIZUMAB
     Dosage: 16 DF, UNK
     Dates: start: 20160501, end: 20160501

REACTIONS (10)
  - Thrombotic microangiopathy [Recovered/Resolved]
  - Graft versus host disease [Recovered/Resolved]
  - Cytomegalovirus infection reactivation [Recovered/Resolved]
  - Reticulocyte count increased [Recovered/Resolved]
  - Myopathy [Unknown]
  - Human herpesvirus 6 infection reactivation [Recovered/Resolved]
  - Haemolytic anaemia [Unknown]
  - Platelet count decreased [Unknown]
  - Renal failure [Unknown]
  - Off label use [Unknown]
